FAERS Safety Report 16447135 (Version 5)
Quarter: 2020Q3

REPORT INFORMATION
  Report Type: Spontaneous
  Country: FR (occurrence: FR)
  Receive Date: 20190618
  Receipt Date: 20200709
  Transmission Date: 20201102
  Serious: Yes (Hospitalization, Other)
  Sender: FDA-Public Use
  Company Number: PHHY2019FR136655

PATIENT
  Age: 58 Year
  Sex: Female

DRUGS (1)
  1. EVEROLIMUS. [Suspect]
     Active Substance: EVEROLIMUS
     Indication: BREAST CANCER
     Dosage: UNK
     Route: 065

REACTIONS (7)
  - Lymphocele [Recovered/Resolved]
  - Inflammation [Recovered/Resolved]
  - Recall phenomenon [Recovered/Resolved]
  - Hyperthermia [Recovered/Resolved]
  - Rash erythematous [Recovered/Resolved]
  - Skin reaction [Unknown]
  - Skin lesion inflammation [Recovered/Resolved]
